FAERS Safety Report 6328779-2 (Version None)
Quarter: 2009Q3

REPORT INFORMATION
  Report Type: 
  Country: None (occurrence: None)
  Receive Date: 20090826
  Receipt Date: 20090817
  Transmission Date: 20100115
  Serious: Yes (Other)
  Sender: FDA-Public Use
  Company Number: CA-ASTRAZENECA-2009SE07891

PATIENT
  Age: 62 Year
  Sex: Male
  Weight: 108.9 kg

DRUGS (11)
  1. CRESTOR [Suspect]
     Indication: HIGH DENSITY LIPOPROTEIN DECREASED
     Route: 048
     Dates: start: 20090728, end: 20090807
  2. CRESTOR [Suspect]
     Indication: LOW DENSITY LIPOPROTEIN INCREASED
     Route: 048
     Dates: start: 20090728, end: 20090807
  3. RAMIPRIL [Concomitant]
     Indication: HYPERTENSION
     Route: 048
  4. SIMVASTATIN [Concomitant]
     Indication: HYPERLIPIDAEMIA
     Route: 065
  5. METFORMIN HCL [Concomitant]
     Route: 065
  6. MULTI-VITAMINS [Concomitant]
     Route: 065
  7. OMEGA III [Concomitant]
     Route: 065
  8. NOVOLIN R [Concomitant]
     Route: 042
  9. NOVOLIN RAPID NPH MIXTURE [Concomitant]
     Route: 042
  10. ASPIRIN [Concomitant]
  11. ALTACE [Concomitant]

REACTIONS (1)
  - CHROMATURIA [None]
